FAERS Safety Report 7459737-2 (Version None)
Quarter: 2011Q2

REPORT INFORMATION
  Report Type: 
  Country: None (occurrence: None)
  Receive Date: 20110505
  Receipt Date: 20110408
  Transmission Date: 20111010
  Serious: Yes (Hospitalization, Other)
  Sender: FDA-Public Use
  Company Number: US-BAYER-201016913NA

PATIENT
  Age: 40 Year
  Sex: Female
  Weight: 77.098 kg

DRUGS (11)
  1. AMBIEN [Concomitant]
  2. ADVIL LIQUI-GELS [Concomitant]
     Indication: HEADACHE
  3. LOMOTIL [Concomitant]
  4. LORTAB [Concomitant]
  5. LEUPROLIDE ACETATE [Concomitant]
  6. MENOPUR [Concomitant]
  7. YAZ [Suspect]
     Indication: MENSTRUAL CYCLE MANAGEMENT
     Dosage: UNK UNK, QD
     Route: 048
     Dates: start: 20071201, end: 20080223
  8. YAZ [Suspect]
     Indication: PROPHYLAXIS
  9. COMPAZINE [Concomitant]
  10. NOVAREL [Concomitant]
  11. FOLLISTIN PEN [Concomitant]

REACTIONS (4)
  - DEPRESSION [None]
  - CEREBROVASCULAR ACCIDENT [None]
  - VENOUS THROMBOSIS [None]
  - INTRACRANIAL VENOUS SINUS THROMBOSIS [None]
